FAERS Safety Report 4274409-3 (Version None)
Quarter: 2004Q1

REPORT INFORMATION
  Report Type: 
  Country: None (occurrence: None)
  Receive Date: 20040120
  Receipt Date: 20040107
  Transmission Date: 20041129
  Serious: Yes (Other)
  Sender: FDA-Public Use
  Company Number: WAES 0401USA00571

PATIENT
  Sex: Female

DRUGS (7)
  1. NORVASC [Concomitant]
  2. CLONIDINE [Concomitant]
  3. LOPID [Concomitant]
  4. COZAAR [Suspect]
     Indication: HYPERTENSION
     Route: 048
  5. TOPROL-XL [Concomitant]
  6. PAXIL [Concomitant]
  7. AVANDIA [Concomitant]

REACTIONS (2)
  - AGRANULOCYTOSIS [None]
  - HAEMOGLOBIN DECREASED [None]
